FAERS Safety Report 17316794 (Version 1)
Quarter: 2020Q1

REPORT INFORMATION
  Report Type: Spontaneous
  Country: US (occurrence: US)
  Receive Date: 20200124
  Receipt Date: 20200124
  Transmission Date: 20200409
  Serious: No
  Sender: FDA-Public Use
  Company Number: US-PERRIGO-19US010978

PATIENT
  Age: 2 Year
  Sex: Female
  Weight: 15.87 kg

DRUGS (2)
  1. IBUPROFEN. [Suspect]
     Active Substance: IBUPROFEN
     Dosage: APPROXIMATELY 600 MG, SINGLE
     Route: 048
     Dates: start: 20190906, end: 20190906
  2. IBUPROFEN. [Suspect]
     Active Substance: IBUPROFEN
     Indication: TEETHING
     Dosage: 100 MG, 1 TO 2 TIMES DAILY, PRN
     Route: 048
     Dates: start: 201909

REACTIONS (3)
  - Accidental exposure to product [Recovered/Resolved]
  - Diarrhoea [Recovered/Resolved]
  - Abnormal behaviour [Recovered/Resolved]

NARRATIVE: CASE EVENT DATE: 20190906
